FAERS Safety Report 5583761-8 (Version None)
Quarter: 2008Q1

REPORT INFORMATION
  Report Type: 
  Country: None (occurrence: None)
  Receive Date: 20080108
  Receipt Date: 20071105
  Transmission Date: 20080703
  Serious: No
  Sender: FDA-Public Use
  Company Number: US-BAYER-US-2007-042098

PATIENT
  Age: 20 Year
  Sex: Female
  Weight: 44 kg

DRUGS (1)
  1. YASMIN [Suspect]
     Indication: CONTRACEPTION
     Route: 048
     Dates: start: 20071001

REACTIONS (4)
  - HEADACHE [None]
  - MOOD SWINGS [None]
  - PRURITUS [None]
  - VULVOVAGINAL MYCOTIC INFECTION [None]
